FAERS Safety Report 23625376 (Version 2)
Quarter: 2024Q1

REPORT INFORMATION
  Report Type: Spontaneous
  Country: US (occurrence: None)
  Receive Date: 20240313
  Receipt Date: 20240321
  Transmission Date: 20240409
  Serious: Yes (Other)
  Sender: FDA-Public Use
  Company Number: US-ROCHE-3520265

PATIENT
  Age: 27 Year
  Sex: Female

DRUGS (11)
  1. OCREVUS [Suspect]
     Active Substance: OCRELIZUMAB
     Indication: Tumefactive multiple sclerosis
     Dosage: INFUSION DATE: 22/JAN/2024
     Route: 065
     Dates: start: 20240108
  2. TYLENOL [Concomitant]
     Active Substance: ACETAMINOPHEN
     Indication: Pain
     Route: 048
  3. ALBUTEROL [Concomitant]
     Active Substance: ALBUTEROL
     Indication: Wheezing
     Dosage: 90 MCG/ACTUATION INHALER
  4. BUTALBITAL [Concomitant]
     Active Substance: BUTALBITAL
     Indication: Headache
     Route: 048
  5. ESCITALOPRAM [Concomitant]
     Active Substance: ESCITALOPRAM OXALATE
     Indication: Depression
     Route: 048
  6. MONTELUKAST [Concomitant]
     Active Substance: MONTELUKAST SODIUM
     Dosage: TAKE 1 TABLET (10 MG TOTAL) BY MOUTH NIGHTLY.
  7. PREDNISONE [Concomitant]
     Active Substance: PREDNISONE
     Dosage: 5 MG TABLET 10MG (2 TABS) DAILY X 7 DAYS, THEN 5MG (1 TAB) DAILY X 7 DAYS, THEN 5MG (1 TAB) EVERY OT
  8. QUETIAPINE [Concomitant]
     Active Substance: QUETIAPINE
     Indication: Insomnia
     Dosage: TAKE 0.5 TABLETS (12.5 MG TOTAL) BY MOUTH NIGHTLY AS NEEDED
     Route: 048
  9. SENNOSIDES [Concomitant]
     Active Substance: SENNOSIDES
     Dosage: TAKE 2 TABLETS BY MOUTH IN THE MORNING.
  10. SYMBICORT [Concomitant]
     Active Substance: BUDESONIDE\FORMOTEROL FUMARATE DIHYDRATE
     Dosage: INHALE 2 PUFFS IN THE MORNING AND 2 PUFFS BEFORE BEDTIME
  11. TRETINOIN [Concomitant]
     Active Substance: TRETINOIN
     Dosage: 0.1 % CREAM APPLY 1 APPLICATION TOPICALLY NIGHTLY

REACTIONS (8)
  - Progressive multifocal leukoencephalopathy [Unknown]
  - Anxiety [Unknown]
  - Depression [Unknown]
  - Asthma [Unknown]
  - Syncope [Unknown]
  - Obesity [Unknown]
  - Antiphospholipid syndrome [Unknown]
  - Seizure [Unknown]
